FAERS Safety Report 17106977 (Version 3)
Quarter: 2020Q1

REPORT INFORMATION
  Report Type: Report from Study
  Country: None (occurrence: US)
  Receive Date: 20191203
  Receipt Date: 20200216
  Transmission Date: 20200409
  Serious: Yes (Hospitalization, Other)
  Sender: FDA-Public Use
  Company Number: US-ABBVIE-19K-163-3178895-00

PATIENT
  Sex: Female
  Weight: 78.09 kg

DRUGS (5)
  1. ALPRAZOLAM. [Concomitant]
     Active Substance: ALPRAZOLAM
     Indication: SLEEP DISORDER
     Route: 065
  2. IBUPROFEN. [Concomitant]
     Active Substance: IBUPROFEN
     Indication: PAIN
     Route: 065
  3. HUMIRA [Suspect]
     Active Substance: ADALIMUMAB
     Indication: PSORIASIS
  4. CITALOPRAM [Concomitant]
     Active Substance: CITALOPRAM HYDROBROMIDE
     Indication: DEPRESSION
     Route: 065
  5. HUMIRA [Suspect]
     Active Substance: ADALIMUMAB
     Indication: PSORIATIC ARTHROPATHY
     Route: 058
     Dates: start: 20140317

REACTIONS (10)
  - Tooth extraction [Recovered/Resolved]
  - Spinal pain [Unknown]
  - Intervertebral disc protrusion [Unknown]
  - Sciatica [Not Recovered/Not Resolved]
  - Retinal vein occlusion [Recovered/Resolved]
  - Cholecystitis [Recovered/Resolved]
  - Pain [Recovering/Resolving]
  - Hypersensitivity [Unknown]
  - Cholecystectomy [Recovered/Resolved]
  - Tooth fracture [Recovered/Resolved]

NARRATIVE: CASE EVENT DATE: 2016
